FAERS Safety Report 11804019 (Version 1)
Quarter: 2015Q4

REPORT INFORMATION
  Report Type: Spontaneous
  Country: US (occurrence: US)
  Receive Date: 20151204
  Receipt Date: 20151204
  Transmission Date: 20160305
  Serious: Yes (Hospitalization)
  Sender: FDA-Public Use
  Company Number: US-BAYER-2015-474995

PATIENT
  Age: 86 Year
  Sex: Female
  Weight: 90.7 kg

DRUGS (11)
  1. LANTUS [Concomitant]
     Active Substance: INSULIN GLARGINE
  2. DILTIAZEM [Concomitant]
     Active Substance: DILTIAZEM
  3. NITROFURANTOIN. [Concomitant]
     Active Substance: NITROFURANTOIN
  4. APIXABAN [Concomitant]
     Active Substance: APIXABAN
  5. GLYBURIDE/METFORMIN [Concomitant]
     Active Substance: GLYBURIDE\METFORMIN
  6. AMIODARONE HCL [Concomitant]
     Active Substance: AMIODARONE HYDROCHLORIDE
  7. ATORVASTATIN [Concomitant]
     Active Substance: ATORVASTATIN
  8. CORRECTOL NOS [Suspect]
     Active Substance: BISACODYL OR DOCUSATE SODIUM
     Indication: CONSTIPATION
     Dosage: 1/2 DOSE, QD
     Route: 048
     Dates: start: 2015
  9. TRIAMTEREN [Concomitant]
     Active Substance: TRIAMTERENE
  10. AZILSARTAN MEDOXOMIL [Concomitant]
     Active Substance: AZILSARTAN KAMEDOXOMIL
  11. LUMIGAN [Concomitant]
     Active Substance: BIMATOPROST

REACTIONS (8)
  - Flatulence [Not Recovered/Not Resolved]
  - Wrong technique in product usage process [None]
  - Product use issue [None]
  - Hypertension [None]
  - Product use issue [None]
  - Drug ineffective [None]
  - Nausea [Not Recovered/Not Resolved]
  - Fluid retention [None]

NARRATIVE: CASE EVENT DATE: 201511
